FAERS Safety Report 15731313 (Version 2)
Quarter: 2018Q4

REPORT INFORMATION
  Report Type: Spontaneous
  Country: DE (occurrence: DE)
  Receive Date: 20181217
  Receipt Date: 20181227
  Transmission Date: 20190205
  Serious: Yes (Life-Threatening, Hospitalization, Other)
  Sender: FDA-Public Use
  Company Number: DE-SAKK-2018SA340594AA

PATIENT
  Sex: Female

DRUGS (3)
  1. L-THYROXIN [LEVOTHYROXINE] [Concomitant]
     Dosage: 50 UG
     Route: 048
  2. LEMTRADA [Suspect]
     Active Substance: ALEMTUZUMAB
     Route: 041
  3. LEVETIRACETAM. [Concomitant]
     Active Substance: LEVETIRACETAM
     Dosage: 1000 MG, QD
     Route: 048

REACTIONS (9)
  - Acute hepatic failure [Unknown]
  - Thrombotic microangiopathy [Recovering/Resolving]
  - Pleural effusion [Recovering/Resolving]
  - Leukoencephalopathy [Recovering/Resolving]
  - Liver transplant [Unknown]
  - Hepatic encephalopathy [Recovering/Resolving]
  - Autoimmune thyroiditis [Unknown]
  - Autoimmune hepatitis [Unknown]
  - Hepatitis infectious mononucleosis [Unknown]

NARRATIVE: CASE EVENT DATE: 201806
